FAERS Safety Report 8557970-X (Version None)
Quarter: 2012Q3

REPORT INFORMATION
  Report Type: 
  Country: None (occurrence: None)
  Receive Date: 20120801
  Receipt Date: 20120723
  Transmission Date: 20120928
  Serious: Yes (Hospitalization, Other)
  Sender: FDA-Public Use
  Company Number: US-ELI_LILLY_AND_COMPANY-US201206004787

PATIENT
  Sex: Female

DRUGS (9)
  1. METAXALONE [Concomitant]
     Dosage: UNK
  2. PANTOPRAZOLE [Concomitant]
     Dosage: UNK
  3. FORTEO [Suspect]
     Indication: OSTEOPOROSIS
     Dosage: 20 UG, QD
     Dates: start: 20120511
  4. PROMETHAZINE [Concomitant]
     Dosage: UNK
  5. PREDNISONE [Concomitant]
     Dosage: UNK
  6. HYDROCODONE [Concomitant]
     Dosage: UNK
  7. VERAPAMIL [Concomitant]
     Dosage: UNK
  8. WARFARIN [Concomitant]
  9. ALPRAZOLAM [Concomitant]
     Dosage: UNK

REACTIONS (3)
  - IRON DEFICIENCY ANAEMIA [None]
  - MOBILITY DECREASED [None]
  - PELVIC FRACTURE [None]
